FAERS Safety Report 5220322-4 (Version None)
Quarter: 2006Q4

REPORT INFORMATION
  Report Type: 
  Country: None (occurrence: None)
  Receive Date: 20061201
  Receipt Date: 20060715
  Transmission Date: 20070319
  Serious: No
  Sender: FDA-Public Use
  Company Number: 2006PV017617

PATIENT
  Age: 63 Year
  Sex: Female

DRUGS (5)
  1. BYETTA [Suspect]
     Indication: DIABETES MELLITUS NON-INSULIN-DEPENDENT
     Dosage: 5 MCG;BID;SC
     Route: 058
     Dates: start: 20060620
  2. GLUCOPHAGE [Concomitant]
  3. GLYSET [Concomitant]
  4. PRECOSE [Concomitant]
  5. AMARYL [Concomitant]

REACTIONS (8)
  - BLOOD GLUCOSE INCREASED [None]
  - BOWEL SOUNDS ABNORMAL [None]
  - CYSTITIS [None]
  - ERUCTATION [None]
  - FREQUENT BOWEL MOVEMENTS [None]
  - OEDEMA PERIPHERAL [None]
  - URINE FLOW DECREASED [None]
  - WEIGHT DECREASED [None]
